FAERS Safety Report 8457071-5 (Version None)
Quarter: 2012Q2

REPORT INFORMATION
  Report Type: 
  Country: None (occurrence: None)
  Receive Date: 20120621
  Receipt Date: 20120614
  Transmission Date: 20120825
  Serious: No
  Sender: FDA-Public Use
  Company Number: US-BAYER-2012-059888

PATIENT
  Age: 65 Year
  Sex: Female
  Weight: 82 kg

DRUGS (5)
  1. VITAMIN E [Concomitant]
  2. ASPIRIN [Suspect]
     Route: 048
  3. ALEVE (CAPLET) [Suspect]
     Indication: ARTHRALGIA
     Dosage: 1 U, PRN
     Route: 048
  4. MULTI-VITAMINS [Concomitant]
  5. VITAMIN D [Concomitant]

REACTIONS (2)
  - TONGUE ULCERATION [None]
  - UNEVALUABLE EVENT [None]
